FAERS Safety Report 9022190 (Version 3)
Quarter: 2013Q2

REPORT INFORMATION
  Report Type: Spontaneous
  Country: US (occurrence: US)
  Receive Date: 20130118
  Receipt Date: 20130502
  Transmission Date: 20140414
  Serious: Yes (Hospitalization, Other)
  Sender: FDA-Public Use
  Company Number: US-009507513-1301USA007530

PATIENT
  Sex: Female
  Weight: 72.56 kg

DRUGS (1)
  1. NUVARING [Suspect]
     Indication: CONTRACEPTION
     Dosage: UNK
     Route: 067
     Dates: start: 20101129, end: 20110128

REACTIONS (10)
  - Dehydration [Unknown]
  - Pulmonary embolism [Unknown]
  - Depression [Unknown]
  - Anxiety [Unknown]
  - Gastrooesophageal reflux disease [Unknown]
  - Scoliosis [Unknown]
  - Constipation [Unknown]
  - Liver function test abnormal [Unknown]
  - Gastroenteritis [Unknown]
  - Muscle spasms [Unknown]
